FAERS Safety Report 4840082-6 (Version None)
Quarter: 2005Q4

REPORT INFORMATION
  Report Type: 
  Country: None (occurrence: None)
  Receive Date: 20051125
  Receipt Date: 20051115
  Transmission Date: 20060501
  Serious: Yes (Hospitalization)
  Sender: FDA-Public Use
  Company Number: APP200500508

PATIENT
  Age: 28 Year
  Sex: Male
  Weight: 106 kg

DRUGS (13)
  1. PROFASI HP [Suspect]
     Indication: DRUG ABUSER
     Dosage: (, CYCLE), INTRAMUSCULAR
     Route: 030
     Dates: start: 19950101, end: 20041101
  2. DECA-DURABOLIN [Suspect]
     Indication: DRUG ABUSER
     Dosage: (, CYCLE), INTRAVENOUS
     Route: 042
     Dates: start: 19950101, end: 20041101
  3. WINSTROL [Suspect]
     Indication: DRUG ABUSER
     Dosage: (,CYCLE)
     Dates: start: 19950101, end: 20041101
  4. FRAXIPARINE (NADROPARIN CALCIUM) [Concomitant]
  5. TOREM (TORASEMIDE) [Concomitant]
  6. STILNOX (ZOLPIDEM) [Concomitant]
  7. ACETAMINOPHEN [Concomitant]
  8. CLONAZEPAM [Concomitant]
  9. METOLAZONE [Concomitant]
  10. CAFFEINE (CAFFEINE) [Concomitant]
  11. ASPIRIN [Concomitant]
  12. TAHOMINA [Concomitant]
  13. SPIROVENT (CLENBUTEROL) [Concomitant]

REACTIONS (6)
  - DYSLIPIDAEMIA [None]
  - EMBOLISM [None]
  - LOSS OF CONSCIOUSNESS [None]
  - MYOPATHY [None]
  - NEPHROTIC SYNDROME [None]
  - RHABDOMYOLYSIS [None]
